FAERS Safety Report 4827289-9 (Version None)
Quarter: 2005Q4

REPORT INFORMATION
  Report Type: 
  Country: None (occurrence: None)
  Receive Date: 20051014
  Receipt Date: 20050802
  Transmission Date: 20060501
  Serious: No
  Sender: FDA-Public Use
  Company Number: 2005SP002206

PATIENT
  Age: 82 Year
  Sex: Male
  Weight: 63.9572 kg

DRUGS (8)
  1. LUNESTA [Suspect]
     Indication: INSOMNIA
     Dosage: 4 MG; HS; ORAL
     Route: 048
     Dates: start: 20050801
  2. METOPROLO TARTRATE [Concomitant]
  3. CARDIZEM [Concomitant]
  4. OMEPRAZOLE [Concomitant]
  5. XALATAN [Concomitant]
  6. LEVOBUNOLOL [Concomitant]
  7. ALPRAZOLAM [Concomitant]
  8. TYLENOL (CAPLET) [Concomitant]

REACTIONS (2)
  - DRUG INEFFECTIVE [None]
  - INSOMNIA [None]
